FAERS Safety Report 9477560 (Version 3)
Quarter: 2013Q4

REPORT INFORMATION
  Report Type: Report from Study
  Country: US (occurrence: US)
  Receive Date: 20130827
  Receipt Date: 20131113
  Transmission Date: 20140711
  Serious: Yes (Hospitalization)
  Sender: FDA-Public Use
  Company Number: US-ACTELION-A-NJ2013-87340

PATIENT
  Age: 76 Year
  Sex: Female

DRUGS (3)
  1. TRACLEER [Suspect]
     Indication: PULMONARY HYPERTENSION
     Dosage: 125 MG, BID
     Route: 048
  2. TRACLEER [Suspect]
     Dosage: 62.5 MG, BID
     Route: 048
     Dates: start: 2008
  3. SILDENAFIL [Concomitant]

REACTIONS (4)
  - Gastrointestinal polyp haemorrhage [Recovered/Resolved]
  - Occult blood positive [Recovered/Resolved]
  - Colonoscopy [Unknown]
  - Drug dose omission [Unknown]
